FAERS Safety Report 25560933 (Version 1)
Quarter: 2025Q3

REPORT INFORMATION
  Report Type: Spontaneous
  Country: CN (occurrence: CN)
  Receive Date: 20250715
  Receipt Date: 20250715
  Transmission Date: 20251020
  Serious: Yes (Other)
  Sender: BEIGENE
  Company Number: CN-BEIGENE-BGN-2025-011012

PATIENT
  Age: 68 Year
  Weight: 58 kg

DRUGS (6)
  1. TISLELIZUMAB [Suspect]
     Active Substance: TISLELIZUMAB
     Indication: Oesophageal carcinoma
     Dosage: 20 MILLILITER, Q3WK
  2. TISLELIZUMAB [Suspect]
     Active Substance: TISLELIZUMAB
     Dosage: 20 MILLILITER, Q3WK
     Route: 041
  3. TISLELIZUMAB [Suspect]
     Active Substance: TISLELIZUMAB
     Dosage: 20 MILLILITER, Q3WK
     Route: 041
  4. TISLELIZUMAB [Suspect]
     Active Substance: TISLELIZUMAB
     Dosage: 20 MILLILITER, Q3WK
  5. PACLITAXEL [Concomitant]
     Active Substance: PACLITAXEL
     Indication: Oesophageal carcinoma
  6. NEDAPLATIN [Concomitant]
     Active Substance: NEDAPLATIN
     Indication: Oesophageal carcinoma

REACTIONS (1)
  - Hepatic function abnormal [Recovering/Resolving]
